FAERS Safety Report 23842315 (Version 1)
Quarter: 2024Q2

REPORT INFORMATION
  Report Type: Spontaneous
  Country: US (occurrence: None)
  Receive Date: 20240509
  Receipt Date: 20240509
  Transmission Date: 20240715
  Serious: Yes (Other)
  Sender: FDA-Public Use
  Company Number: None

PATIENT
  Age: 71 Year
  Sex: Female
  Weight: 67.5 kg

DRUGS (6)
  1. RECLAST [Suspect]
     Active Substance: ZOLEDRONIC ACID
     Indication: Osteoporosis
     Dosage: OTHER QUANTITY : 1 INJECTION(S);?
     Route: 042
     Dates: start: 20240502, end: 20240502
  2. ROSUVASTATIN [Concomitant]
     Active Substance: ROSUVASTATIN
  3. ASPIRIN [Concomitant]
     Active Substance: ASPIRIN
  4. MAGNESIUM WITH ZINC [Concomitant]
  5. VITAMIN D3 [Concomitant]
     Active Substance: CHOLECALCIFEROL
  6. CALCIUM CITRATE\CHOLECALCIFEROL [Concomitant]
     Active Substance: CALCIUM CITRATE\CHOLECALCIFEROL

REACTIONS (13)
  - Headache [None]
  - Fatigue [None]
  - Chills [None]
  - Pyrexia [None]
  - Osteoarthritis [None]
  - Bone pain [None]
  - Back pain [None]
  - Groin pain [None]
  - Muscle spasms [None]
  - Pain in extremity [None]
  - Pain in extremity [None]
  - Muscle spasms [None]
  - Neck pain [None]

NARRATIVE: CASE EVENT DATE: 20240502
